FAERS Safety Report 13484274 (Version 1)
Quarter: 2017Q2

REPORT INFORMATION
  Report Type: Spontaneous
  Country: US (occurrence: US)
  Receive Date: 20170425
  Receipt Date: 20170425
  Transmission Date: 20170830
  Serious: No
  Sender: FDA-Public Use
  Company Number: None

PATIENT
  Age: 68 Year
  Sex: Female

DRUGS (1)
  1. IMATINIB 10MG SUNPHARMA [Suspect]
     Active Substance: IMATINIB
     Indication: CHRONIC MYELOID LEUKAEMIA
     Dosage: FREQUENCY - 3 TABLETS PO DAILY
     Route: 048
     Dates: start: 20170330, end: 20170421

REACTIONS (4)
  - Tachycardia [None]
  - Pollakiuria [None]
  - Product substitution issue [None]
  - Muscle spasms [None]

NARRATIVE: CASE EVENT DATE: 20170421
